FAERS Safety Report 22052848 (Version 3)
Quarter: 2023Q1

REPORT INFORMATION
  Report Type: Other
  Country: IR (occurrence: IR)
  Receive Date: 20230302
  Receipt Date: 20230324
  Transmission Date: 20230418
  Serious: Yes (Death, Other)
  Sender: FDA-Public Use
  Company Number: IR-CHIESI-2023CHF01053

PATIENT
  Age: 0 Year
  Sex: Female
  Weight: 1.05 kg

DRUGS (8)
  1. CUROSURF [Suspect]
     Active Substance: PORACTANT ALFA
     Indication: Neonatal respiratory distress syndrome
     Dosage: 2.5 MILLILITER, UNK
     Route: 007
     Dates: start: 20230103, end: 20230103
  2. CUROSURF [Suspect]
     Active Substance: PORACTANT ALFA
     Dosage: 1.3 MILLILITER, UNK
     Route: 007
     Dates: start: 20230104, end: 20230104
  3. CALCIUM GLUCONATE [Concomitant]
     Active Substance: CALCIUM GLUCONATE
     Indication: Product used for unknown indication
  4. CAFFEINE [Concomitant]
     Active Substance: CAFFEINE
     Indication: Product used for unknown indication
  5. SOYBEAN OIL [Concomitant]
     Active Substance: SOYBEAN OIL
  6. AMINO ACIDS, SOURCE UNSPECIFIED [Concomitant]
     Active Substance: AMINO ACIDS, SOURCE UNSPECIFIED
  7. AMIKACIN [Concomitant]
     Active Substance: AMIKACIN
     Indication: Product used for unknown indication
  8. AMPICILLIN [Concomitant]
     Active Substance: AMPICILLIN
     Indication: Product used for unknown indication

REACTIONS (5)
  - Premature baby death [Fatal]
  - Pulmonary haemorrhage [Unknown]
  - Oxygen saturation decreased [Unknown]
  - Renal tubular necrosis [Unknown]
  - Product quality issue [Recovered/Resolved]

NARRATIVE: CASE EVENT DATE: 20230104
